FAERS Safety Report 17909292 (Version 1)
Quarter: 2020Q2

REPORT INFORMATION
  Report Type: Spontaneous
  Country: US (occurrence: US)
  Receive Date: 20200617
  Receipt Date: 20200617
  Transmission Date: 20200714
  Serious: No
  Sender: FDA-Public Use
  Company Number: US-ASTRAZENECA-2020SE67134

PATIENT
  Age: 22758 Day
  Sex: Male
  Weight: 81.2 kg

DRUGS (2)
  1. IBERSARTIN [Concomitant]
     Indication: HYPERTENSION
     Route: 048
     Dates: start: 2005
  2. PULMICORT FLEXHALER [Suspect]
     Active Substance: BUDESONIDE
     Indication: ASTHMA
     Dosage: 180 MCG, ONE PUFF, TWO TIMES A DAY
     Route: 055
     Dates: start: 20200415

REACTIONS (8)
  - Gait disturbance [Unknown]
  - Drug dose omission by device [Unknown]
  - Intentional device misuse [Unknown]
  - Device issue [Unknown]
  - Productive cough [Unknown]
  - Sensory loss [Unknown]
  - Wrong technique in device usage process [Unknown]
  - Dyspnoea [Unknown]

NARRATIVE: CASE EVENT DATE: 20200516
